FAERS Safety Report 7087843-3 (Version None)
Quarter: 2010Q4

REPORT INFORMATION
  Report Type: 
  Country: None (occurrence: None)
  Receive Date: 20101108
  Receipt Date: 20101026
  Transmission Date: 20110411
  Serious: Yes (Hospitalization, Other)
  Sender: FDA-Public Use
  Company Number: US-JNJFOC-20101007716

PATIENT
  Sex: Female
  Weight: 63.5 kg

DRUGS (7)
  1. SANDOZ FENTANYL TRANSDERMAL SYSTEM [Suspect]
     Indication: PAIN
     Route: 062
  2. SANDOZ FENTANYL TRANSDERMAL SYSTEM [Suspect]
     Route: 062
  3. SYNTHROID [Concomitant]
     Indication: THYROID DISORDER
     Route: 048
  4. DIFLUCAN [Concomitant]
     Indication: INFECTION
     Route: 048
  5. PHENYTOIN [Concomitant]
     Indication: CONVULSION
     Route: 048
  6. RESTORIL [Concomitant]
     Indication: SLEEP DISORDER THERAPY
     Dosage: NIGHT AS NEEDED
     Route: 048
  7. COTRIM [Concomitant]
     Indication: INFECTION
     Dosage: 100/160 MG
     Route: 048

REACTIONS (7)
  - FALL [None]
  - HOSPITALISATION [None]
  - INAPPROPRIATE SCHEDULE OF DRUG ADMINISTRATION [None]
  - INFECTION [None]
  - PRODUCT QUALITY ISSUE [None]
  - UPPER LIMB FRACTURE [None]
  - WEIGHT DECREASED [None]
